FAERS Safety Report 12272418 (Version 16)
Quarter: 2016Q4

REPORT INFORMATION
  Report Type: Report from Study
  Country: CA (occurrence: CA)
  Receive Date: 20160415
  Receipt Date: 20161212
  Transmission Date: 20170207
  Serious: Yes (Hospitalization, Other)
  Sender: FDA-Public Use
  Company Number: CA-ROCHE-1551851

PATIENT
  Age: 52 Year
  Sex: Female
  Weight: 63 kg

DRUGS (12)
  1. PERJETA [Suspect]
     Active Substance: PERTUZUMAB
     Dosage: MAINTENANCE DOSE
     Route: 042
     Dates: start: 20150409
  2. IMODIUM [Concomitant]
     Active Substance: LOPERAMIDE HYDROCHLORIDE
  3. CLONIDINE. [Concomitant]
     Active Substance: CLONIDINE
  4. HYDROXYCHLOROQUINE [Concomitant]
     Active Substance: HYDROXYCHLOROQUINE
  5. ACTONEL [Concomitant]
     Active Substance: RISEDRONATE SODIUM
  6. AROMASIN [Concomitant]
     Active Substance: EXEMESTANE
  7. TAXOTERE [Concomitant]
     Active Substance: DOCETAXEL
     Dosage: SIX TREATMENTS OF TAXOTERE WHICH STARTED IN 2006
     Route: 065
     Dates: start: 2006
  8. PERJETA [Suspect]
     Active Substance: PERTUZUMAB
     Indication: BREAST CANCER
     Dosage: LOADING DOSE
     Route: 042
     Dates: start: 20150320
  9. DOCUSATE [Concomitant]
     Active Substance: DOCUSATE
  10. DEXILANT [Concomitant]
     Active Substance: DEXLANSOPRAZOLE
  11. HERCEPTIN [Suspect]
     Active Substance: TRASTUZUMAB
     Indication: BREAST CANCER
     Route: 042
     Dates: start: 200701, end: 200812
  12. PRAMIPEXOLE. [Suspect]
     Active Substance: PRAMIPEXOLE
     Indication: PRODUCT USED FOR UNKNOWN INDICATION
     Route: 065

REACTIONS (42)
  - Paraesthesia [Unknown]
  - Pulmonary mass [Not Recovered/Not Resolved]
  - Nausea [Unknown]
  - Weight decreased [Not Recovered/Not Resolved]
  - Diarrhoea [Recovering/Resolving]
  - Asthenia [Unknown]
  - Oral herpes [Unknown]
  - Device occlusion [Not Recovered/Not Resolved]
  - Blood pressure fluctuation [Unknown]
  - Pyrexia [Recovered/Resolved]
  - Limb discomfort [Unknown]
  - Hodgkin^s disease [Not Recovered/Not Resolved]
  - Neoplasm [Unknown]
  - Infusion related reaction [Unknown]
  - Dizziness [Unknown]
  - Weight decreased [Unknown]
  - Fatigue [Unknown]
  - Therapy non-responder [Unknown]
  - Lymph nodes scan abnormal [Unknown]
  - Dyspepsia [Unknown]
  - Diarrhoea [Recovering/Resolving]
  - Skin infection [Not Recovered/Not Resolved]
  - Vomiting [Not Recovered/Not Resolved]
  - Blood pressure diastolic decreased [Unknown]
  - Drug ineffective [Unknown]
  - Fatigue [Not Recovered/Not Resolved]
  - Nausea [Recovered/Resolved]
  - Back pain [Unknown]
  - Pneumothorax [Recovering/Resolving]
  - Hypotension [Unknown]
  - Diarrhoea [Not Recovered/Not Resolved]
  - Gastroenteritis [Not Recovered/Not Resolved]
  - Diarrhoea [Unknown]
  - Lymphadenopathy [Recovering/Resolving]
  - Hypotension [Recovering/Resolving]
  - Chest pain [Not Recovered/Not Resolved]
  - Drug administration error [Unknown]
  - Somnolence [Unknown]
  - Back pain [Recovering/Resolving]
  - Nasopharyngitis [Recovering/Resolving]
  - Diarrhoea [Not Recovered/Not Resolved]
  - Abdominal pain [Not Recovered/Not Resolved]

NARRATIVE: CASE EVENT DATE: 2015
